FAERS Safety Report 8603222-9 (Version None)
Quarter: 2012Q3

REPORT INFORMATION
  Report Type: 
  Country: None (occurrence: None)
  Receive Date: 20120817
  Receipt Date: 20120813
  Transmission Date: 20120928
  Serious: Yes (Other)
  Sender: FDA-Public Use
  Company Number: BR-ELI_LILLY_AND_COMPANY-BR201203004221

PATIENT
  Sex: Male

DRUGS (3)
  1. HUMALOG [Suspect]
     Indication: DIABETES MELLITUS
     Dosage: 4 IU, BID
     Route: 065
  2. LANTUS [Concomitant]
     Dosage: 20 IU, EACH MORNING
     Route: 065
  3. HUMALOG MIX 50/50 [Suspect]
     Indication: DIABETES MELLITUS
     Dosage: UNK, UNKNOWN
     Route: 065

REACTIONS (4)
  - MALNUTRITION [None]
  - COMA [None]
  - HYPOGLYCAEMIA [None]
  - INTENTIONAL DRUG MISUSE [None]
